FAERS Safety Report 9438148 (Version 1)
Quarter: 2013Q3

REPORT INFORMATION
  Report Type: Spontaneous
  Country: US (occurrence: US)
  Receive Date: 20130802
  Receipt Date: 20130802
  Transmission Date: 20140515
  Serious: No
  Sender: FDA-Public Use
  Company Number: US-BRISTOL-MYERS SQUIBB COMPANY-16847428

PATIENT
  Age: 67 Year
  Sex: Female

DRUGS (7)
  1. COUMADIN [Suspect]
     Dosage: COUMADIN 10MG ON FRIDAY, SATURDAY, SUNDAY?5MG:MONDAY THROUGH THURSDAY OF EACH WEEK
  2. METFORMIN HCL [Concomitant]
  3. CARVEDILOL [Concomitant]
  4. DILTIAZEM HCL [Concomitant]
  5. FUROSEMIDE [Concomitant]
  6. POTASSIUM [Concomitant]
     Dosage: 1DF:10MEG
  7. VITAMIN D [Concomitant]

REACTIONS (1)
  - Urinary tract infection [Unknown]
